FAERS Safety Report 4333061-9 (Version None)
Quarter: 2004Q2

REPORT INFORMATION
  Report Type: 
  Country: None (occurrence: None)
  Receive Date: 20040405
  Receipt Date: 20040405
  Transmission Date: 20050107
  Serious: No
  Sender: FDA-Public Use
  Company Number: None

PATIENT
  Age: 35 Year
  Sex: Female

DRUGS (3)
  1. REPRONEX [Suspect]
     Indication: INFERTILITY
     Dosage: 150 UNITS/DAY
     Dates: start: 20040317, end: 20040321
  2. HCG [Suspect]
     Dosage: 10, 000 UNITS
     Dates: start: 20040322
  3. CLOMID [Suspect]
     Dates: start: 20040312, end: 20040316

REACTIONS (1)
  - CONVULSION [None]
